FAERS Safety Report 21082436 (Version 1)
Quarter: 2022Q3

REPORT INFORMATION
  Report Type: Spontaneous
  Country: TR (occurrence: TR)
  Receive Date: 20220714
  Receipt Date: 20220714
  Transmission Date: 20221027
  Serious: Yes (Other)
  Sender: FDA-Public Use
  Company Number: TR-SLATE RUN PHARMACEUTICALS-22TR001192

PATIENT

DRUGS (7)
  1. AZITHROMYCIN [Suspect]
     Active Substance: AZITHROMYCIN
     Indication: Pneumonia
     Dosage: 250 MILLIGRAM, ON DAYS 2-5
     Route: 048
     Dates: start: 20200401, end: 20200404
  2. AZITHROMYCIN [Suspect]
     Active Substance: AZITHROMYCIN
     Dosage: 500 MILLIGRAM, QD
     Route: 048
     Dates: start: 20200330, end: 20200330
  3. OXYGEN [Concomitant]
     Active Substance: OXYGEN
     Indication: Product used for unknown indication
     Dosage: 4 L.MIN?1
     Dates: start: 2020
  4. ACETAMINOPHEN [Concomitant]
     Active Substance: ACETAMINOPHEN
     Indication: Pyrexia
     Dosage: 1000 MILLIGRAM, TID
     Route: 042
     Dates: start: 2020
  5. OSELTAMIVIR [Concomitant]
     Active Substance: OSELTAMIVIR
     Indication: Influenza
     Dosage: 75 MILLIGRAM, BID
     Dates: start: 20200330, end: 20200403
  6. HYDROXYCHLOROQUINE [Concomitant]
     Active Substance: HYDROXYCHLOROQUINE
     Indication: Influenza
     Dosage: 200 MILLIGRAM, BID, ON DAYS 2-5
     Route: 048
     Dates: start: 20200331, end: 20200404
  7. HYDROXYCHLOROQUINE [Concomitant]
     Active Substance: HYDROXYCHLOROQUINE
     Dosage: 400 MILLIGRAM, BID ON DAY 1
     Route: 048
     Dates: start: 20200330, end: 20200330

REACTIONS (6)
  - Haemophagocytic lymphohistiocytosis [Unknown]
  - Oxygen saturation decreased [Recovered/Resolved]
  - Tachypnoea [Unknown]
  - Cytokine storm [Unknown]
  - Interleukin level increased [Unknown]
  - Off label use [Recovered/Resolved]

NARRATIVE: CASE EVENT DATE: 20200330
